FAERS Safety Report 20064205 (Version 1)
Quarter: 2021Q4

REPORT INFORMATION
  Report Type: Spontaneous
  Country: US (occurrence: US)
  Receive Date: 20211112
  Receipt Date: 20211112
  Transmission Date: 20220304
  Serious: Yes (Other)
  Sender: FDA-Public Use
  Company Number: US-PFIZER INC-2021895161

PATIENT
  Age: 70 Year
  Sex: Female

DRUGS (1)
  1. IBRANCE [Suspect]
     Active Substance: PALBOCICLIB
     Dosage: 100 MG
     Dates: start: 20210408

REACTIONS (5)
  - Vocal cord paralysis [Unknown]
  - Limb discomfort [Unknown]
  - Hypoaesthesia [Unknown]
  - Hypoaesthesia [Unknown]
  - Dizziness [Unknown]
